FAERS Safety Report 15804385 (Version 1)
Quarter: 2019Q1

REPORT INFORMATION
  Report Type: Spontaneous
  Country: GB (occurrence: GB)
  Receive Date: 20190109
  Receipt Date: 20190109
  Transmission Date: 20190417
  Serious: Yes (Hospitalization)
  Sender: FDA-Public Use
  Company Number: GB-PFIZER INC-2006145408

PATIENT
  Age: 70 Year
  Sex: Female

DRUGS (15)
  1. ALLOPURINOL. [Concomitant]
     Active Substance: ALLOPURINOL
  2. ATORVASTATIN [Concomitant]
     Active Substance: ATORVASTATIN
  3. CANDESARTAN. [Concomitant]
     Active Substance: CANDESARTAN
  4. CLARITHROMYCIN. [Concomitant]
     Active Substance: CLARITHROMYCIN
  5. PREDNISOLONE. [Concomitant]
     Active Substance: PREDNISOLONE
  6. DOXORUBICIN HCL [Suspect]
     Active Substance: DOXORUBICIN HYDROCHLORIDE
     Indication: LYMPHOMA
     Dosage: 80 MG, SINGLE
     Route: 042
     Dates: start: 20061027, end: 20061027
  7. OMEPRAZOLE. [Concomitant]
     Active Substance: OMEPRAZOLE
  8. VINCRISTINE SULFATE. [Suspect]
     Active Substance: VINCRISTINE SULFATE
     Indication: LYMPHOMA
     Dosage: 1 MG, SINGLE
     Dates: start: 20061027, end: 20061027
  9. DILTIAZEM. [Concomitant]
     Active Substance: DILTIAZEM
  10. ISOSORBIDE. [Concomitant]
     Active Substance: ISOSORBIDE
  11. FLUCONAZOLE. [Concomitant]
     Active Substance: FLUCONAZOLE
  12. PREDNISONE. [Suspect]
     Active Substance: PREDNISONE
     Indication: LYMPHOMA
  13. MOVICOL [Concomitant]
     Active Substance: POLYETHYLENE GLYCOL 3350\POTASSIUM CHLORIDE\SODIUM BICARBONATE\SODIUM CHLORIDE
  14. CYCLOPHOSPHAMIDE. [Suspect]
     Active Substance: CYCLOPHOSPHAMIDE
     Indication: LYMPHOMA
     Dosage: 1200 MG, SINGLE
     Route: 042
     Dates: start: 20061027, end: 20061027
  15. MABTHERA [Suspect]
     Active Substance: RITUXIMAB
     Indication: LYMPHOMA
     Dosage: 600 MG, SINGLE
     Route: 042
     Dates: start: 20061027, end: 20061027

REACTIONS (1)
  - Central nervous system lymphoma [Not Recovered/Not Resolved]
